FAERS Safety Report 9874294 (Version 2)
Quarter: 2014Q1

REPORT INFORMATION
  Report Type: Other
  Country: US (occurrence: US)
  Receive Date: 20140206
  Receipt Date: 20140206
  Transmission Date: 20141002
  Serious: No
  Sender: FDA-Public Use
  Company Number: US-ACORDA-ACO_34910_2013

PATIENT
  Age: 48 Year
  Sex: Male
  Weight: 79.37 kg

DRUGS (2)
  1. AMPYRA [Suspect]
     Indication: GAIT DISTURBANCE
     Dosage: 10 MG, BID
     Route: 048
     Dates: start: 20130110, end: 20130310
  2. AMPYRA [Suspect]
     Dosage: UNK
     Dates: start: 20130423

REACTIONS (4)
  - Visual impairment [Unknown]
  - Cognitive disorder [Not Recovered/Not Resolved]
  - Viral infection [Recovered/Resolved]
  - Multiple sclerosis relapse [Recovered/Resolved]
